FAERS Safety Report 18072491 (Version 2)
Quarter: 2020Q3

REPORT INFORMATION
  Report Type: Spontaneous
  Country: US (occurrence: US)
  Receive Date: 20200727
  Receipt Date: 20200904
  Transmission Date: 20201103
  Serious: Yes (Other)
  Sender: FDA-Public Use
  Company Number: US-SUNOVION-2020SUN002160

PATIENT
  Age: 62 Year
  Sex: Female

DRUGS (1)
  1. LONHALA MAGNAIR [Suspect]
     Active Substance: GLYCOPYRROLATE
     Dosage: 25 ?G
     Route: 055

REACTIONS (9)
  - Cerebrovascular accident [Unknown]
  - Device malfunction [Unknown]
  - Device power source issue [Unknown]
  - Device delivery system issue [Unknown]
  - Device issue [Unknown]
  - Lower limb fracture [Unknown]
  - Paralysis [Unknown]
  - Fall [Unknown]
  - Product dose omission issue [Unknown]
